FAERS Safety Report 11043282 (Version 1)
Quarter: 2015Q2

REPORT INFORMATION
  Report Type: Spontaneous
  Country: US (occurrence: None)
  Receive Date: 20150416
  Receipt Date: 20150416
  Transmission Date: 20150821
  Serious: Yes (Hospitalization, Disabling)
  Sender: FDA-Public Use
  Company Number: None

PATIENT
  Age: 56 Year
  Sex: Female
  Weight: 146.06 kg

DRUGS (14)
  1. ALLPURINAL [Concomitant]
  2. WARFARIN [Concomitant]
     Active Substance: WARFARIN
  3. CIPRO [Suspect]
     Active Substance: CIPROFLOXACIN HYDROCHLORIDE
     Indication: ESCHERICHIA INFECTION
     Dosage: 1 PILL TWICE DAILY TAKEN BY MOUTH
     Route: 048
     Dates: start: 20130103, end: 20150126
  4. VITAMIN D [Concomitant]
     Active Substance: CHOLECALCIFEROL
  5. LISINOPRIL. [Concomitant]
     Active Substance: LISINOPRIL
  6. VANTIN [Concomitant]
     Active Substance: CEFPODOXIME PROXETIL
  7. LEVOTHROID [Concomitant]
     Active Substance: LEVOTHYROXINE SODIUM
  8. NORTRIPTYLINE [Concomitant]
     Active Substance: NORTRIPTYLINE
  9. INSULIN [Concomitant]
     Active Substance: INSULIN NOS
  10. SIMVISTATIN [Concomitant]
     Active Substance: SIMVASTATIN
  11. PREDNISONE. [Concomitant]
     Active Substance: PREDNISONE
  12. LOW DOSE ASPIRIN [Concomitant]
     Active Substance: ASPIRIN
  13. LASIX [Concomitant]
     Active Substance: FUROSEMIDE
  14. CALCIUM [Concomitant]
     Active Substance: CALCIUM

REACTIONS (8)
  - Blister [None]
  - Candida infection [None]
  - Neuropathy peripheral [None]
  - Fatigue [None]
  - Pemphigoid [None]
  - Pruritus [None]
  - Muscular weakness [None]
  - Autoimmune disorder [None]

NARRATIVE: CASE EVENT DATE: 20150102
